FAERS Safety Report 21165437 (Version 1)
Quarter: 2022Q3

REPORT INFORMATION
  Report Type: Spontaneous
  Country: US (occurrence: US)
  Receive Date: 20220803
  Receipt Date: 20220803
  Transmission Date: 20221027
  Serious: Yes (Other)
  Sender: FDA-Public Use
  Company Number: US-MACLEODS PHARMACEUTICALS US LTD-MAC2022036611

PATIENT

DRUGS (1)
  1. OLANZAPINE [Suspect]
     Active Substance: OLANZAPINE
     Indication: Product used for unknown indication
     Dosage: 5 MILLIGRAM, BID, STARTED SINCE BETWEEN 22-24-JUN-2022, 5MG IN MORNING AND 5 MG AT NIGHT
     Route: 065

REACTIONS (5)
  - Loss of consciousness [Unknown]
  - Seizure [Unknown]
  - Rash [Unknown]
  - Medication error [Unknown]
  - Product substitution issue [Unknown]
